FAERS Safety Report 15179142 (Version 2)
Quarter: 2018Q3

REPORT INFORMATION
  Report Type: Spontaneous
  Country: US (occurrence: US)
  Receive Date: 20180723
  Receipt Date: 20180801
  Transmission Date: 20181010
  Serious: No
  Sender: FDA-Public Use
  Company Number: US-TEVA-2018-US-928911

PATIENT
  Sex: Male

DRUGS (1)
  1. CLONAZEPAM. [Suspect]
     Active Substance: CLONAZEPAM
     Dates: start: 20180710

REACTIONS (3)
  - Pollakiuria [Unknown]
  - Middle insomnia [Unknown]
  - Product commingling [Unknown]

NARRATIVE: CASE EVENT DATE: 20180710
